FAERS Safety Report 7828222-8 (Version None)
Quarter: 2011Q4

REPORT INFORMATION
  Report Type: 
  Country: None (occurrence: None)
  Receive Date: 20111020
  Receipt Date: 20111012
  Transmission Date: 20120403
  Serious: Yes (Hospitalization)
  Sender: FDA-Public Use
  Company Number: US-SANOFI-AVENTIS-2011SA067223

PATIENT
  Age: 68 Year
  Sex: Male
  Weight: 92.9 kg

DRUGS (13)
  1. GLIPIZIDE [Concomitant]
     Route: 048
  2. ASPIRIN [Concomitant]
     Route: 048
  3. METOPROLOL TARTRATE [Concomitant]
     Route: 048
  4. PLAVIX [Suspect]
     Route: 048
  5. DOXAZOSIN MESYLATE [Concomitant]
  6. PANTOPRAZOLE [Concomitant]
     Route: 048
  7. HYDRALAZINE HCL [Concomitant]
  8. NIFEDIPINE [Concomitant]
     Route: 048
  9. FERROUS SULFATE TAB [Concomitant]
     Route: 048
  10. SIMVASTATIN [Concomitant]
     Route: 048
  11. TYLENOL-500 [Concomitant]
  12. SILDENAFIL CITRATE [Concomitant]
  13. MULTI-VITAMINS [Concomitant]
     Route: 048

REACTIONS (7)
  - PULMONARY OEDEMA [None]
  - DYSPNOEA [None]
  - BLOOD GLUCOSE DECREASED [None]
  - RALES [None]
  - HEART RATE IRREGULAR [None]
  - FALL [None]
  - OEDEMA PERIPHERAL [None]
